FAERS Safety Report 15694029 (Version 1)
Quarter: 2018Q4

REPORT INFORMATION
  Report Type: Spontaneous
  Country: IT (occurrence: IT)
  Receive Date: 20181206
  Receipt Date: 20181206
  Transmission Date: 20190205
  Serious: Yes (Other)
  Sender: FDA-Public Use
  Company Number: IT-SA-2018SA329577

PATIENT
  Age: 55 Year
  Sex: Male

DRUGS (1)
  1. AUBAGIO [Suspect]
     Active Substance: TERIFLUNOMIDE
     Indication: MULTIPLE SCLEROSIS
     Route: 048
     Dates: start: 20150902, end: 20151204

REACTIONS (2)
  - Eye infection toxoplasmal [Recovered/Resolved with Sequelae]
  - Uveitis [Recovered/Resolved with Sequelae]

NARRATIVE: CASE EVENT DATE: 20151126
